FAERS Safety Report 5123303-4 (Version None)
Quarter: 2006Q4

REPORT INFORMATION
  Report Type: 
  Country: None (occurrence: None)
  Receive Date: 20061005
  Receipt Date: 20060919
  Transmission Date: 20070319
  Serious: Yes (Hospitalization)
  Sender: FDA-Public Use
  Company Number: DSA_28751_2006

PATIENT
  Age: 56 Year
  Sex: Male

DRUGS (12)
  1. TAVOR [Suspect]
     Dosage: 10 TAB ONCE PO
     Route: 048
     Dates: start: 20060918, end: 20060918
  2. ALPRAZOLAM [Suspect]
     Dosage: 30 TAB ONCE PO
     Route: 048
     Dates: start: 20060918, end: 20060918
  3. AMLODIPINE [Suspect]
     Dosage: 10 TAB ONCE PO
     Route: 048
     Dates: start: 20060918, end: 20060918
  4. BALDRIAN-PHYTON [Suspect]
     Dosage: 30 TAB ONCE PO
     Route: 048
     Dates: start: 20060918, end: 20060918
  5. DIPHENHYDRAMINE HCL [Suspect]
     Dosage: 10 TAB ONCE PO
     Route: 048
     Dates: start: 20060918, end: 20060918
  6. IMODIUM [Suspect]
     Dosage: 5 TAB ONCE PO
     Route: 048
     Dates: start: 20060918, end: 20060918
  7. KYTTA- SEDATIVUM F [Suspect]
     Dosage: 20 TAB ONCE PO
     Route: 048
     Dates: start: 20060918, end: 20060918
  8. ACETAMINOPHEN [Suspect]
     Dosage: 5000 MG ONCE PO
     Route: 048
     Dates: start: 20060918, end: 20060918
  9. PHENAZONE [Suspect]
     Dosage: 36 TAB ONCE PO
     Route: 048
     Dates: start: 20060918, end: 20060918
  10. TRAMADOL HCL [Suspect]
     Dosage: 50 TAB ONCE PO
     Route: 048
     Dates: start: 20060918, end: 20060918
  11. TRIMIPRAMINE MALEATE [Suspect]
     Dosage: 5000 MG ONCE PO
     Route: 048
     Dates: start: 20060918, end: 20060918
  12. VOLTAREN [Suspect]
     Dosage: DF ONCE PO
     Route: 048
     Dates: start: 20060918, end: 20060918

REACTIONS (5)
  - LOSS OF CONSCIOUSNESS [None]
  - MIOSIS [None]
  - MULTIPLE DRUG OVERDOSE INTENTIONAL [None]
  - RESPIRATORY FAILURE [None]
  - SUICIDE ATTEMPT [None]
